FAERS Safety Report 7544338-8 (Version None)
Quarter: 2011Q2

REPORT INFORMATION
  Report Type: 
  Country: None (occurrence: None)
  Receive Date: 20110613
  Receipt Date: 20071109
  Transmission Date: 20111010
  Serious: Yes (Hospitalization, Other)
  Sender: FDA-Public Use
  Company Number: PHMT2007CA02165

PATIENT
  Sex: Female

DRUGS (3)
  1. ANTINEOPLASTIC AGENTS [Concomitant]
     Dates: start: 20071010, end: 20071012
  2. SANDOSTATIN LAR [Suspect]
     Indication: NEUROENDOCRINE TUMOUR
     Dosage: 30 MG,EVERY 04 WEEKS
     Route: 030
     Dates: start: 20071004
  3. SANDOSTATIN LAR [Suspect]
     Dosage: 40 MG EVERY 4 WEEKS
     Route: 030
     Dates: start: 20071111

REACTIONS (16)
  - BLOOD POTASSIUM DECREASED [None]
  - CHEILITIS [None]
  - JOINT SWELLING [None]
  - MUSCULAR WEAKNESS [None]
  - DIABETES MELLITUS [None]
  - MALAISE [None]
  - SEPSIS [None]
  - INFECTION [None]
  - DECREASED APPETITE [None]
  - VOMITING [None]
  - HAEMOGLOBIN DECREASED [None]
  - NEOPLASM MALIGNANT [None]
  - NAUSEA [None]
  - YELLOW SKIN [None]
  - PYREXIA [None]
  - WHITE BLOOD CELL COUNT DECREASED [None]
